FAERS Safety Report 6444840-6 (Version None)
Quarter: 2009Q4

REPORT INFORMATION
  Report Type: 
  Country: None (occurrence: None)
  Receive Date: 20091118
  Receipt Date: 20091109
  Transmission Date: 20100525
  Serious: Yes (Disabling, Other)
  Sender: FDA-Public Use
  Company Number: PHEH2009US13860

PATIENT
  Sex: Female

DRUGS (2)
  1. EXJADE [Suspect]
     Indication: ANAEMIA
     Dosage: 1750 MG DAILY
     Route: 048
     Dates: start: 20090923, end: 20091007
  2. EXJADE [Suspect]
     Indication: IRON OVERLOAD

REACTIONS (2)
  - ORAL MUCOSAL ERUPTION [None]
  - RASH [None]
